FAERS Safety Report 7932134-9 (Version None)
Quarter: 2011Q4

REPORT INFORMATION
  Report Type: 
  Country: None (occurrence: None)
  Receive Date: 20111121
  Receipt Date: 20110830
  Transmission Date: 20120403
  Serious: No
  Sender: FDA-Public Use
  Company Number: US-AMGEN-USASP2011027624

PATIENT
  Age: 25 Year
  Sex: Female

DRUGS (10)
  1. FISH OIL [Concomitant]
  2. GLUCOSAMINE CHONDROITIN [Concomitant]
  3. ENBREL [Suspect]
     Indication: PSORIASIS
     Dosage: 50 MG, QWK
     Dates: start: 20110401
  4. FOLIC ACID [Concomitant]
  5. YEAST-GARD                         /00866801/ [Concomitant]
  6. ENBREL [Suspect]
     Indication: RHEUMATOID ARTHRITIS
  7. METHOTREXATE [Concomitant]
     Dosage: UNK UNK, QD
  8. SULINDAC [Concomitant]
  9. ENBREL [Suspect]
     Indication: PSORIATIC ARTHROPATHY
  10. JUNEL 1.5/30 [Concomitant]

REACTIONS (3)
  - INJECTION SITE REACTION [None]
  - INJECTION SITE URTICARIA [None]
  - INJECTION SITE ERYTHEMA [None]
